FAERS Safety Report 21561916 (Version 1)
Quarter: 2022Q4

REPORT INFORMATION
  Report Type: Spontaneous
  Country: DE (occurrence: DE)
  Receive Date: 20221107
  Receipt Date: 20221107
  Transmission Date: 20230112
  Serious: Yes (Death, Hospitalization, Other)
  Sender: FDA-Public Use
  Company Number: None

PATIENT
  Age: 79 Year
  Sex: Female
  Weight: 80 kg

DRUGS (9)
  1. METHOTREXATE SODIUM [Suspect]
     Active Substance: METHOTREXATE SODIUM
     Indication: Rheumatic disorder
     Dosage: 1 X ON SUNDAYS
     Route: 048
  2. PREDNISOLONE [Suspect]
     Active Substance: PREDNISOLONE
     Indication: Rheumatic disorder
     Dosage: 1-0-0
     Route: 048
  3. NOVALGIN (METAMIZOLE SODIUM) [Suspect]
     Active Substance: METAMIZOLE SODIUM
     Indication: Rheumatic disorder
     Dosage: 4 X 40 DROPS
     Route: 048
  4. LEFLUNOMIDE [Suspect]
     Active Substance: LEFLUNOMIDE
     Indication: Rheumatic disorder
     Dosage: 1 X 20 MG EVERY 2 DAYS
     Route: 048
  5. TORSEMIDE [Concomitant]
     Active Substance: TORSEMIDE
     Indication: Aortic valve stenosis
     Dosage: 0,5-0-0
     Route: 048
  6. PANTOPRAZOLE SODIUM [Concomitant]
     Active Substance: PANTOPRAZOLE SODIUM
     Indication: Gastritis
     Dosage: 1-0-0
     Route: 048
  7. FENTANYL [Concomitant]
     Active Substance: FENTANYL
     Indication: Rheumatic disorder
     Dosage: PATCH, FREQ:3 D;EVERY 3 DAYS
     Route: 062
  8. METOPROLOL [Concomitant]
     Active Substance: METOPROLOL
     Indication: Aortic valve stenosis
     Dosage: 2X/DAY (FREQ:12 H;1-0-1)
     Route: 048
  9. POLYETHYLENE GLYCOLS [Concomitant]
     Active Substance: POLYETHYLENE GLYCOLS
     Indication: Constipation
     Dosage: 2X/DAY (FREQ:12 H;1-0-1)
     Route: 048

REACTIONS (7)
  - Agranulocytosis [Fatal]
  - Thrombocytopenia [Fatal]
  - Pancytopenia [Fatal]
  - Septic shock [Fatal]
  - Colitis [Fatal]
  - Pleural effusion [Unknown]
  - Off label use [Unknown]

NARRATIVE: CASE EVENT DATE: 20221022
